FAERS Safety Report 8003627-3 (Version None)
Quarter: 2011Q4

REPORT INFORMATION
  Report Type: 
  Country: None (occurrence: None)
  Receive Date: 20111222
  Receipt Date: 20111215
  Transmission Date: 20120403
  Serious: Yes (Death, Hospitalization)
  Sender: FDA-Public Use
  Company Number: US-ACTELION-A-NJ2009-31298

PATIENT

DRUGS (3)
  1. COUMADIN [Concomitant]
  2. TRACLEER [Suspect]
     Indication: PULMONARY ARTERIAL HYPERTENSION
     Dosage: UNK
     Route: 048
     Dates: start: 20090101
  3. REVATIO [Concomitant]

REACTIONS (8)
  - PNEUMONIA [None]
  - DYSPNOEA [None]
  - DEATH [None]
  - VOMITING [None]
  - NAUSEA [None]
  - CHOLECYSTITIS [None]
  - ABDOMINAL PAIN [None]
  - CHOLECYSTECTOMY [None]
